FAERS Safety Report 4544965-6 (Version None)
Quarter: 2005Q1

REPORT INFORMATION
  Report Type: 
  Country: None (occurrence: None)
  Receive Date: 20050105
  Receipt Date: 20041222
  Transmission Date: 20050727
  Serious: Yes (Life-Threatening, Hospitalization)
  Sender: FDA-Public Use
  Company Number: CA-ROCHE-390260

PATIENT
  Age: 15 Year
  Sex: Male
  Weight: 86.2 kg

DRUGS (2)
  1. ACCUTANE [Suspect]
     Indication: ACNE
     Route: 048
     Dates: start: 20040915, end: 20041111
  2. ACCUTANE [Suspect]
     Route: 048
     Dates: start: 20041112, end: 20041201

REACTIONS (4)
  - DEPRESSION [None]
  - EATING DISORDER [None]
  - INSOMNIA [None]
  - SUICIDAL IDEATION [None]
